FAERS Safety Report 5229264-1 (Version None)
Quarter: 2007Q1

REPORT INFORMATION
  Report Type: 
  Country: None (occurrence: None)
  Receive Date: 20061201
  Receipt Date: 20060807
  Transmission Date: 20070707
  Serious: No
  Sender: FDA-Public Use
  Company Number: US200608001554

PATIENT
  Age: 63 Year
  Sex: Female

DRUGS (1)
  1. CYMBALTA [Suspect]
     Indication: NEUROPATHY
     Dates: end: 20050301

REACTIONS (3)
  - DISORIENTATION [None]
  - DYSARTHRIA [None]
  - SPEECH DISORDER [None]
